FAERS Safety Report 24994696 (Version 1)
Quarter: 2025Q1

REPORT INFORMATION
  Report Type: Spontaneous
  Country: US (occurrence: None)
  Receive Date: 20250220
  Receipt Date: 20250220
  Transmission Date: 20250409
  Serious: No
  Sender: FDA-CTU
  Company Number: None

PATIENT
  Age: 68 Year
  Sex: Female
  Weight: 109.77 kg

DRUGS (2)
  1. ORENCIA [Suspect]
     Active Substance: ABATACEPT
     Indication: Pulmonary arterial hypertension
     Dosage: OTHER QUANTITY : 10/40MG;?FREQUENCY : DAILY;?
     Route: 048
     Dates: start: 202407
  2. WINREVAIR [Concomitant]
     Active Substance: SOTATERCEPT-CSRK

REACTIONS (3)
  - Food poisoning [None]
  - Platelet count decreased [None]
  - Therapy change [None]
